FAERS Safety Report 6727629 (Version 2)
Quarter: 2013Q2

REPORT INFORMATION
  Report Type: Spontaneous
  Country: US (occurrence: None)
  Receive Date: 20080620
  Receipt Date: 20120511
  Transmission Date: 20140414
  Serious: Yes (Other)
  Sender: FDA-Public Use
  Company Number: PHEH2008US03649

PATIENT
  Age: 10 Year
  Sex: Male
  Weight: 34.5 kg

DRUGS (1)
  1. FOCALIN XR [Suspect]
     Indication: ATTENTION DEFICIT/HYPERACTIVITY DISORDER
     Dosage: 5
     Dates: start: 20080321, end: 20080411

REACTIONS (1)
  - HALLUCINATION, AUDITORY [None]
